FAERS Safety Report 4862963-X (Version None)
Quarter: 2005Q4

REPORT INFORMATION
  Report Type: 
  Country: None (occurrence: None)
  Receive Date: 20051219
  Receipt Date: 20051205
  Transmission Date: 20060501
  Serious: Yes (Other)
  Sender: FDA-Public Use
  Company Number: 2004198887JP

PATIENT
  Age: 33 Year
  Sex: Male

DRUGS (3)
  1. LINCOCIN [Suspect]
     Indication: ILL-DEFINED DISORDER
     Dosage: 600 MG INTRAVENOUS
     Route: 042
     Dates: start: 19970401
  2. CLARITHROMYCIN [Concomitant]
  3. CALONAL (PARACETAMOL) [Concomitant]

REACTIONS (4)
  - LIVER DISORDER [None]
  - OBLITERATIVE BRONCHIOLITIS [None]
  - OBSTRUCTIVE AIRWAYS DISORDER [None]
  - TOXIC EPIDERMAL NECROLYSIS [None]
